FAERS Safety Report 9173471 (Version 2)
Quarter: 2013Q2

REPORT INFORMATION
  Report Type: Spontaneous
  Country: DK (occurrence: None)
  Receive Date: 20130313
  Receipt Date: 20130604
  Transmission Date: 20140414
  Serious: Yes (Hospitalization)
  Sender: FDA-Public Use
  Company Number: FK201300723

PATIENT
  Age: 40 Year
  Sex: Female
  Weight: 100 kg

DRUGS (3)
  1. PACLITAXEL [Suspect]
     Indication: OVARIAN CANCER
     Route: 042
     Dates: start: 20110418, end: 20110418
  2. CARBOPLATIN [Suspect]
     Indication: OVARIAN CANCER
     Route: 042
     Dates: start: 20110418, end: 20110418
  3. BIBF 1120 (BIBF 1120) [Concomitant]

REACTIONS (4)
  - Febrile neutropenia [None]
  - Blood potassium decreased [None]
  - Blood magnesium decreased [None]
  - Haemoglobin decreased [None]
